FAERS Safety Report 10562296 (Version 3)
Quarter: 2015Q2

REPORT INFORMATION
  Report Type: Spontaneous
  Country: US (occurrence: None)
  Receive Date: 20141031
  Receipt Date: 20150504
  Transmission Date: 20150821
  Serious: Yes (Death, Hospitalization, Other)
  Sender: FDA-Public Use
  Company Number: 2014AP005370

PATIENT
  Age: 71 Year
  Sex: Male
  Weight: 78 kg

DRUGS (31)
  1. FERRIPROX [Suspect]
     Active Substance: DEFERIPRONE
     Indication: MYELOFIBROSIS
     Route: 048
     Dates: start: 20130826, end: 20140929
  2. FERRIPROX [Suspect]
     Active Substance: DEFERIPRONE
     Indication: HAEMOCHROMATOSIS
     Route: 048
     Dates: start: 20130826, end: 20140929
  3. TORSEMIDE (TORASEMIDE) [Concomitant]
  4. LOMOTIL (ATROPINE SULFATE, DIPHENOXYLATE HYDROCHLORIDE) [Concomitant]
  5. COREG [Concomitant]
     Active Substance: CARVEDILOL
  6. KCL (POTASSIUM CHLORIDE) [Concomitant]
  7. JAKAFI (RULOXOLITINIB PHOSPHATE) [Concomitant]
  8. BENTYL (DICYCLOVERINE HYDROCHLORIDE) [Concomitant]
  9. DRISDOOL (ERGOCALCIFEROL) [Concomitant]
  10. ASPIRIN (ACETYLSALICYLIC ACID) [Concomitant]
     Active Substance: ASPIRIN
  11. OXYCODONE (OXYCODONE HYDROCHLORIDE) [Concomitant]
  12. ZOFRAN  (ONDANSETRON) [Concomitant]
  13. KAYEXXALATE (SODIUM POLYSTYRENE SULFONATE) [Concomitant]
  14. FERRIPROX [Suspect]
     Active Substance: DEFERIPRONE
     Indication: TRANSFUSION
     Route: 048
     Dates: start: 20130826, end: 20140929
  15. COLESTIPOL (COLESTIPOL) [Concomitant]
     Active Substance: COLESTIPOL
  16. CARVEDILOL (CARVEDILOL) [Concomitant]
     Active Substance: CARVEDILOL
  17. NORVASC [Concomitant]
     Active Substance: AMLODIPINE BESYLATE
  18. MEGACE [Concomitant]
     Active Substance: MEGESTROL ACETATE
     Indication: PRODUCT USED FOR UNKNOWN INDICATION
  19. AMLODIPINE [Concomitant]
     Active Substance: AMLODIPINE BESYLATE
  20. DICYCLOMINE [Concomitant]
     Active Substance: DICYCLOMINE HYDROCHLORIDE
  21. ALLOPURINOL (ALLOPURINOL) [Concomitant]
     Active Substance: ALLOPURINOL
  22. NTG (GLYCERYL TRINITRATE) [Concomitant]
     Active Substance: NITROGLYCERIN
  23. DEMADEX  (TORASEMIDE) [Concomitant]
  24. OMEPRAZOLE (OMEPRAZOLE) [Concomitant]
     Active Substance: OMEPRAZOLE
  25. TAMSULOSIN (TAMSULOSIN) [Concomitant]
     Active Substance: TAMSULOSIN
  26. VITAMIN D (ERGOCALCIFEROL) [Concomitant]
     Active Substance: ERGOCALCIFEROL
  27. ZEBETA [Concomitant]
     Active Substance: BISOPROLOL FUMARATE
  28. QUESTRAN (COLESTYRAMINE) [Concomitant]
  29. SYNTHROID [Concomitant]
     Active Substance: LEVOTHYROXINE SODIUM
  30. PRILOSEC  (OMEPRAZOLE) [Concomitant]
     Active Substance: OMEPRAZOLE MAGNESIUM
  31. FLOMAX [Concomitant]
     Active Substance: TAMSULOSIN HYDROCHLORIDE

REACTIONS (5)
  - Abdominal pain [None]
  - Pyrexia [None]
  - Hepatic failure [None]
  - Procedural complication [None]
  - Ascites [None]

NARRATIVE: CASE EVENT DATE: 20140929
